FAERS Safety Report 23262424 (Version 1)
Quarter: 2023Q4

REPORT INFORMATION
  Report Type: Spontaneous
  Country: TW (occurrence: TW)
  Receive Date: 20231205
  Receipt Date: 20231205
  Transmission Date: 20240110
  Serious: Yes (Other)
  Sender: FDA-Public Use
  Company Number: TW-ASTELLAS-2023US035772

PATIENT
  Age: 68 Year
  Sex: Female
  Weight: 64.6 kg

DRUGS (9)
  1. GILTERITINIB [Suspect]
     Active Substance: GILTERITINIB
     Indication: Acute myeloid leukaemia
     Route: 065
     Dates: start: 20220825, end: 20220921
  2. GILTERITINIB [Suspect]
     Active Substance: GILTERITINIB
     Route: 065
     Dates: start: 20230803
  3. TACROLIMUS [Suspect]
     Active Substance: TACROLIMUS
     Indication: Product used for unknown indication
     Dosage: UNK UNK, UNKNOWN FREQ.
     Route: 065
     Dates: start: 20230727, end: 20230814
  4. SOLU-MEDROL [Concomitant]
     Active Substance: METHYLPREDNISOLONE SODIUM SUCCINATE
     Indication: Product used for unknown indication
     Route: 065
     Dates: start: 20230630, end: 20230705
  5. SOLU-MEDROL [Concomitant]
     Active Substance: METHYLPREDNISOLONE SODIUM SUCCINATE
     Route: 065
     Dates: start: 20230706, end: 20230714
  6. SOLU-MEDROL [Concomitant]
     Active Substance: METHYLPREDNISOLONE SODIUM SUCCINATE
     Dosage: SOLUMEDROL 40MG/20MG, UNKNOWN FREQ.
     Route: 065
     Dates: start: 20230715, end: 20230724
  7. PREDONINE [Concomitant]
     Active Substance: PREDNISOLONE
     Indication: Product used for unknown indication
     Dosage: 7/24-26 PREDONINE 7 TAB, TWICE DAILY
     Route: 065
     Dates: start: 20230724, end: 20230726
  8. PREDONINE [Concomitant]
     Active Substance: PREDNISOLONE
     Dosage: 7/24-26 PREDONINE 5 TAB, TWICE DAILY
     Route: 065
     Dates: start: 20230726, end: 20230728
  9. RUXOLITINIB [Concomitant]
     Active Substance: RUXOLITINIB
     Indication: Product used for unknown indication
     Route: 065
     Dates: start: 20230719, end: 20230812

REACTIONS (1)
  - Cytomegalovirus viraemia [Unknown]

NARRATIVE: CASE EVENT DATE: 20230803
